FAERS Safety Report 12675753 (Version 1)
Quarter: 2016Q3

REPORT INFORMATION
  Report Type: Spontaneous
  Country: US (occurrence: None)
  Receive Date: 20160822
  Receipt Date: 20160822
  Transmission Date: 20161109
  Serious: No
  Sender: FDA-Public Use
  Company Number: None

PATIENT
  Age: 25 Year
  Sex: Female
  Weight: 50 kg

DRUGS (1)
  1. TRAZODONE [Suspect]
     Active Substance: TRAZODONE HYDROCHLORIDE
     Indication: INSOMNIA
     Route: 048
     Dates: start: 20160715

REACTIONS (4)
  - Similar reaction on previous exposure to drug [None]
  - Heart rate decreased [None]
  - Panic reaction [None]
  - Nightmare [None]

NARRATIVE: CASE EVENT DATE: 20160715
